FAERS Safety Report 4354416-2 (Version None)
Quarter: 2004Q2

REPORT INFORMATION
  Report Type: 
  Country: None (occurrence: None)
  Receive Date: 20040503
  Receipt Date: 20040420
  Transmission Date: 20050107
  Serious: Yes (Hospitalization)
  Sender: FDA-Public Use
  Company Number: 2004UW08471

PATIENT
  Age: 77 Year
  Sex: Male

DRUGS (6)
  1. ELAVIL [Suspect]
     Dosage: 10 MG HS PO
     Route: 048
  2. RAMIPRIL [Suspect]
     Dosage: 2.5 MG PO
     Route: 048
     Dates: start: 20040318
  3. ASPIRIN [Concomitant]
  4. FUROSEMIDE [Concomitant]
  5. GLICLAZIDE [Concomitant]
  6. SIMVASTATIN [Concomitant]

REACTIONS (4)
  - ATRIAL FIBRILLATION [None]
  - CONDITION AGGRAVATED [None]
  - FALL [None]
  - HYPOTENSION [None]
